FAERS Safety Report 5132057-7 (Version None)
Quarter: 2006Q4

REPORT INFORMATION
  Report Type: 
  Country: None (occurrence: None)
  Receive Date: 20061017
  Receipt Date: 20060907
  Transmission Date: 20070319
  Serious: Yes (Hospitalization)
  Sender: FDA-Public Use
  Company Number: RENA-11914

PATIENT
  Age: 72 Year
  Sex: Female

DRUGS (3)
  1. RENAGEL [Suspect]
     Indication: HYPERPHOSPHATAEMIA
     Dosage: 4.8 G DAILY PO
     Route: 048
  2. RENAGEL [Suspect]
     Indication: HYPERPHOSPHATAEMIA
     Dosage: 7.2 G DAILY PO
     Route: 048
     Dates: start: 20060904
  3. ANITBIOTICS [Concomitant]

REACTIONS (5)
  - DIARRHOEA [None]
  - ECONOMIC PROBLEM [None]
  - GASTRIC ULCER HAEMORRHAGE [None]
  - RECTAL HAEMORRHAGE [None]
  - TREATMENT NONCOMPLIANCE [None]
